FAERS Safety Report 13003549 (Version 2)
Quarter: 2017Q1

REPORT INFORMATION
  Report Type: Spontaneous
  Country: US (occurrence: US)
  Receive Date: 20161206
  Receipt Date: 20170108
  Transmission Date: 20170428
  Serious: Yes (Other)
  Sender: FDA-Public Use
  Company Number: US-BEH-2016075753

PATIENT
  Age: 33 Year
  Sex: Male

DRUGS (2)
  1. HAEMATE P [Suspect]
     Active Substance: ANTIHEMOPHILIC FACTOR HUMAN
     Indication: VON WILLEBRAND^S DISEASE
     Dosage: 4000 IU, QOD
     Route: 042
     Dates: start: 20130807
  2. HAEMATE P [Suspect]
     Active Substance: ANTIHEMOPHILIC FACTOR HUMAN
     Dosage: UNK
     Route: 042
     Dates: start: 20161120

REACTIONS (3)
  - Drug ineffective [Unknown]
  - Haemarthrosis [Recovered/Resolved]
  - Vein collapse [Recovered/Resolved]

NARRATIVE: CASE EVENT DATE: 20161120
